FAERS Safety Report 9580647 (Version 1)
Quarter: 2013Q3

REPORT INFORMATION
  Report Type: Spontaneous
  Country: US (occurrence: None)
  Receive Date: 20130916
  Receipt Date: 20130916
  Transmission Date: 20140515
  Serious: Yes (Other)
  Sender: FDA-Public Use
  Company Number: JPI-P-033566

PATIENT
  Age: 59 Year
  Sex: Female
  Weight: 70.31 kg

DRUGS (22)
  1. XYREM [Suspect]
     Indication: NARCOLEPSY
     Route: 048
     Dates: start: 20130603, end: 2013
  2. CITALOPRAM [Concomitant]
  3. VITAMIN B12 [Concomitant]
  4. DESONIDE [Concomitant]
  5. DOXYCYCLINE [Concomitant]
  6. ESTRADIOL [Concomitant]
  7. FOLIC ACID [Concomitant]
  8. HYDROCORTISONE [Concomitant]
  9. INDAPAMIDE [Concomitant]
  10. LEVOTHYROXINE [Concomitant]
  11. LISINOPRIL [Concomitant]
  12. MISOPROSTOL [Concomitant]
  13. MODAFINIL [Concomitant]
  14. PANTOPRAZOLE [Concomitant]
  15. POLYETHTYLENE GLYCOL [Concomitant]
  16. POTASSIUM CITRATE [Concomitant]
  17. RIZATRIPTAN BENZOATE [Concomitant]
  18. SIMVASTATIN [Concomitant]
  19. SUCRALFATE [Concomitant]
  20. TOPIRAMATE [Concomitant]
  21. UBIQUINON [Concomitant]
  22. VENLAFAXINE [Concomitant]

REACTIONS (2)
  - Depression [None]
  - Crying [None]
